FAERS Safety Report 7229181-1 (Version None)
Quarter: 2011Q1

REPORT INFORMATION
  Report Type: 
  Country: None (occurrence: None)
  Receive Date: 20110117
  Receipt Date: 20110109
  Transmission Date: 20110831
  Serious: Yes (Other)
  Sender: FDA-Public Use
  Company Number: US-JNJFOC-20110102907

PATIENT
  Age: 74 Year
  Sex: Male
  Weight: 81.65 kg

DRUGS (2)
  1. PEPCID AC [Suspect]
     Route: 048
  2. PEPCID AC [Suspect]
     Indication: GASTROOESOPHAGEAL REFLUX DISEASE
     Route: 048

REACTIONS (4)
  - GAIT DISTURBANCE [None]
  - FEELING ABNORMAL [None]
  - WEIGHT DECREASED [None]
  - NAUSEA [None]
